FAERS Safety Report 16593031 (Version 3)
Quarter: 2019Q3

REPORT INFORMATION
  Report Type: Spontaneous
  Country: JP (occurrence: JP)
  Receive Date: 20190718
  Receipt Date: 20190729
  Transmission Date: 20191004
  Serious: Yes (Death, Other)
  Sender: FDA-Public Use
  Company Number: JP-009507513-1907JPN011303

PATIENT
  Age: 80 Year
  Sex: Male

DRUGS (16)
  1. DOBUTAMINE [Concomitant]
     Active Substance: DOBUTAMINE HYDROCHLORIDE
     Indication: CELLULITIS
     Dosage: 5GAMMA, CONT
     Dates: start: 201905
  2. PITRESSIN [Concomitant]
     Active Substance: VASOPRESSIN
     Indication: CELLULITIS
     Dosage: 1.0U/H, CONT
     Dates: start: 201905
  3. BLOOD CELLS, RED [Concomitant]
     Active Substance: HUMAN RED BLOOD CELL
     Indication: CELLULITIS
     Dosage: 8 U, ONCE
     Dates: start: 201905
  4. PITRESSIN [Concomitant]
     Active Substance: VASOPRESSIN
     Indication: TOXIC SHOCK SYNDROME STREPTOCOCCAL
  5. NOREPINEPHRINE. [Concomitant]
     Active Substance: NOREPINEPHRINE
     Indication: TOXIC SHOCK SYNDROME STREPTOCOCCAL
  6. TEDIZOLID PHOSPHATE. [Suspect]
     Active Substance: TEDIZOLID PHOSPHATE
     Indication: CELLULITIS
     Dosage: 200 MG, QD
     Route: 041
     Dates: start: 201905
  7. GLOBULIN, IMMUNE [Concomitant]
     Active Substance: HUMAN IMMUNOGLOBULIN G
     Indication: CELLULITIS
     Dosage: 5G, ONCE
     Dates: start: 201905
  8. GLOBULIN, IMMUNE [Concomitant]
     Active Substance: HUMAN IMMUNOGLOBULIN G
     Indication: TOXIC SHOCK SYNDROME STREPTOCOCCAL
  9. MEROPENEM. [Suspect]
     Active Substance: MEROPENEM
     Indication: CELLULITIS
     Dosage: 1 G, TID
     Route: 041
     Dates: start: 201905
  10. BLOOD, PLASMA [Concomitant]
     Active Substance: HUMAN PLASMA
     Indication: TOXIC SHOCK SYNDROME STREPTOCOCCAL
     Dosage: 4 U, ONCE
  11. MEROPENEM. [Suspect]
     Active Substance: MEROPENEM
     Indication: TOXIC SHOCK SYNDROME STREPTOCOCCAL
  12. TEDIZOLID PHOSPHATE. [Suspect]
     Active Substance: TEDIZOLID PHOSPHATE
     Indication: TOXIC SHOCK SYNDROME STREPTOCOCCAL
  13. NOREPINEPHRINE. [Concomitant]
     Active Substance: NOREPINEPHRINE
     Indication: CELLULITIS
     Dosage: 0.1 GAMMA, CONT
     Dates: start: 201905
  14. DOBUTAMINE [Concomitant]
     Active Substance: DOBUTAMINE HYDROCHLORIDE
     Indication: TOXIC SHOCK SYNDROME STREPTOCOCCAL
  15. BLOOD CELLS, RED [Concomitant]
     Active Substance: HUMAN RED BLOOD CELL
     Indication: TOXIC SHOCK SYNDROME STREPTOCOCCAL
  16. BLOOD, PLASMA [Concomitant]
     Active Substance: HUMAN PLASMA
     Indication: CELLULITIS
     Dosage: 4 U, ONCE
     Dates: start: 201905

REACTIONS (4)
  - Toxic shock syndrome streptococcal [Fatal]
  - Cellulitis [Fatal]
  - Product use in unapproved indication [Unknown]
  - Off label use [Unknown]

NARRATIVE: CASE EVENT DATE: 201905
